FAERS Safety Report 7583505-4 (Version None)
Quarter: 2011Q2

REPORT INFORMATION
  Report Type: 
  Country: None (occurrence: None)
  Receive Date: 20110630
  Receipt Date: 20110523
  Transmission Date: 20111010
  Serious: Yes (Hospitalization, Other)
  Sender: FDA-Public Use
  Company Number: US-BAYER-2011-020332

PATIENT
  Age: 47 Year
  Sex: Female
  Weight: 70 kg

DRUGS (5)
  1. YAZ [Suspect]
     Indication: MENORRHAGIA
     Dosage: UNK
     Route: 048
     Dates: start: 20070901, end: 20090401
  2. YASMIN [Suspect]
     Indication: MENORRHAGIA
     Dosage: UNK
     Route: 048
     Dates: start: 20051101, end: 20070801
  3. XYZAL [Concomitant]
     Indication: MULTIPLE ALLERGIES
     Dosage: UNK
     Dates: start: 20081001
  4. AMITIZA [Concomitant]
     Dosage: UNK
     Dates: start: 20081101
  5. NEXIUM [Concomitant]
     Dosage: UNK
     Dates: start: 20080801

REACTIONS (8)
  - PAIN [None]
  - GALLBLADDER DISORDER [None]
  - ANXIETY [None]
  - POST CHOLECYSTECTOMY SYNDROME [None]
  - CHOLELITHIASIS [None]
  - CHOLECYSTITIS CHRONIC [None]
  - GALLBLADDER PAIN [None]
  - PSYCHIATRIC SYMPTOM [None]
